FAERS Safety Report 22021583 (Version 1)
Quarter: 2023Q1

REPORT INFORMATION
  Report Type: Spontaneous
  Country: US (occurrence: US)
  Receive Date: 20230222
  Receipt Date: 20230222
  Transmission Date: 20230417
  Serious: Yes (Other)
  Sender: FDA-Public Use
  Company Number: US-002147023-NVSC2023US036895

PATIENT

DRUGS (2)
  1. AMOXICILLIN AND CLAVULANATE POTASSIUM [Suspect]
     Active Substance: AMOXICILLIN\CLAVULANATE POTASSIUM
     Indication: Product used for unknown indication
     Dosage: UNK, 500-125 MG, 10 AUG 2022
     Route: 065
  2. ACETAMINOPHEN [Suspect]
     Active Substance: ACETAMINOPHEN
     Indication: Product used for unknown indication
     Dosage: UNK
     Route: 065

REACTIONS (13)
  - Drug-induced liver injury [Unknown]
  - Jaundice [Unknown]
  - Cholelithiasis [Unknown]
  - Chromaturia [Unknown]
  - Pruritus [Unknown]
  - Chills [Unknown]
  - Body temperature increased [Unknown]
  - Decreased appetite [Unknown]
  - Nausea [Unknown]
  - Faeces pale [Unknown]
  - Feeling hot [Unknown]
  - Paraesthesia [Unknown]
  - Fatigue [Unknown]

NARRATIVE: CASE EVENT DATE: 20220813
